FAERS Safety Report 24590150 (Version 5)
Quarter: 2025Q1

REPORT INFORMATION
  Report Type: Spontaneous
  Country: US (occurrence: US)
  Receive Date: 20241107
  Receipt Date: 20250217
  Transmission Date: 20250409
  Serious: Yes (Death, Other)
  Sender: ABBVIE
  Company Number: US-ABBVIE-5987563

PATIENT
  Age: 44 Year
  Sex: Female
  Weight: 113 kg

DRUGS (3)
  1. SKYRIZI [Suspect]
     Active Substance: RISANKIZUMAB-RZAA
     Indication: Psoriasis
     Route: 058
     Dates: start: 20240102, end: 202407
  2. CLOBETASOL [Concomitant]
     Active Substance: CLOBETASOL
     Indication: Psoriasis
     Route: 061
     Dates: start: 20230128, end: 2024
  3. TRIAMCINOLONE [Concomitant]
     Active Substance: TRIAMCINOLONE
     Indication: Psoriasis
     Route: 061
     Dates: start: 20230128, end: 2024

REACTIONS (19)
  - Cardio-respiratory arrest [Fatal]
  - Fatigue [Not Recovered/Not Resolved]
  - Illness [Not Recovered/Not Resolved]
  - Respiratory tract infection [Not Recovered/Not Resolved]
  - Dyspnoea [Not Recovered/Not Resolved]
  - Fluid retention [Not Recovered/Not Resolved]
  - Abdominal distension [Not Recovered/Not Resolved]
  - Chronic hepatic failure [Unknown]
  - Cirrhosis alcoholic [Unknown]
  - Hepatic steatosis [Unknown]
  - Pancreatitis chronic [Unknown]
  - Pleural effusion [Unknown]
  - Hypoxic-ischaemic encephalopathy [Fatal]
  - Ascites [Unknown]
  - Jaundice [Unknown]
  - Cardiomyopathy [Unknown]
  - Ventricular hypertrophy [Unknown]
  - Medical procedure [Unknown]
  - Psoriasis [Unknown]

NARRATIVE: CASE EVENT DATE: 20241001
